FAERS Safety Report 4694532-9 (Version None)
Quarter: 2005Q2

REPORT INFORMATION
  Report Type: 
  Country: None (occurrence: None)
  Receive Date: 20050620
  Receipt Date: 20050606
  Transmission Date: 20051028
  Serious: Yes (Other)
  Sender: FDA-Public Use
  Company Number: US-GLAXOSMITHKLINE-A0561296A

PATIENT
  Age: 52 Year
  Sex: Male

DRUGS (1)
  1. DEBROX DROPS [Suspect]
     Route: 001

REACTIONS (2)
  - DEAFNESS TRANSITORY [None]
  - INTENTIONAL MISUSE [None]
